FAERS Safety Report 18783135 (Version 3)
Quarter: 2021Q2

REPORT INFORMATION
  Report Type: Spontaneous
  Country: US (occurrence: US)
  Receive Date: 20210125
  Receipt Date: 20210510
  Transmission Date: 20210717
  Serious: Yes (Life-Threatening)
  Sender: FDA-Public Use
  Company Number: US-JNJFOC-20210131393

PATIENT
  Age: 7 Decade
  Sex: Female

DRUGS (1)
  1. TREMFYA [Suspect]
     Active Substance: GUSELKUMAB
     Indication: PSORIASIS
     Route: 058

REACTIONS (4)
  - Swelling face [Recovered/Resolved]
  - Chest discomfort [Recovered/Resolved]
  - Dysphagia [Recovered/Resolved]
  - Rash [Recovered/Resolved]
